FAERS Safety Report 14707604 (Version 1)
Quarter: 2018Q2

REPORT INFORMATION
  Report Type: Spontaneous
  Country: US (occurrence: US)
  Receive Date: 20180403
  Receipt Date: 20180403
  Transmission Date: 20180711
  Serious: Yes (Other)
  Sender: FDA-Public Use
  Company Number: US-ALVOGEN-2018-ALVOGEN-095632

PATIENT
  Sex: Male

DRUGS (15)
  1. FLOVENT [Suspect]
     Active Substance: FLUTICASONE PROPIONATE
     Indication: CHRONIC OBSTRUCTIVE PULMONARY DISEASE
     Dosage: 2 PUFFS
     Route: 055
     Dates: start: 2017
  2. CHLORTHALIDONE. [Concomitant]
     Active Substance: CHLORTHALIDONE
     Indication: PRODUCT USED FOR UNKNOWN INDICATION
  3. VENTOLIN HFA [Suspect]
     Active Substance: ALBUTEROL SULFATE
     Indication: EMPHYSEMA
  4. ANORO ELLIPTA [Suspect]
     Active Substance: UMECLIDINIUM BROMIDE\VILANTEROL TRIFENATATE
     Indication: CHRONIC OBSTRUCTIVE PULMONARY DISEASE
     Dosage: 1 PUFF
     Route: 055
  5. OMEPRAZOLE. [Concomitant]
     Active Substance: OMEPRAZOLE
     Indication: PRODUCT USED FOR UNKNOWN INDICATION
  6. LISINOPRIL. [Suspect]
     Active Substance: LISINOPRIL
     Indication: HYPERTENSION
     Dosage: SOME TIME LAST YEAR IN 2017
  7. ANORO ELLIPTA [Suspect]
     Active Substance: UMECLIDINIUM BROMIDE\VILANTEROL TRIFENATATE
     Indication: EMPHYSEMA
     Dosage: 1 PUFF
  8. VENTOLIN HFA [Suspect]
     Active Substance: ALBUTEROL SULFATE
     Indication: CHRONIC OBSTRUCTIVE PULMONARY DISEASE
     Dosage: 2 PUFFS
     Route: 055
  9. AMLODIPINE [Concomitant]
     Active Substance: AMLODIPINE BESYLATE
     Indication: PRODUCT USED FOR UNKNOWN INDICATION
  10. ACETYLSALICYLIC ACID [Concomitant]
     Active Substance: ASPIRIN
     Indication: PRODUCT USED FOR UNKNOWN INDICATION
  11. PREDNISONE. [Concomitant]
     Active Substance: PREDNISONE
     Indication: PRODUCT USED FOR UNKNOWN INDICATION
  12. BEVESPI AEROSPHERE [Suspect]
     Active Substance: FORMOTEROL FUMARATE\GLYCOPYRROLATE
     Indication: EMPHYSEMA
     Dosage: 2 PUFFS
     Route: 055
     Dates: start: 201711
  13. BEVESPI AEROSPHERE [Suspect]
     Active Substance: FORMOTEROL FUMARATE\GLYCOPYRROLATE
     Indication: CHRONIC OBSTRUCTIVE PULMONARY DISEASE
     Dosage: 2 PUFFS
     Route: 055
     Dates: start: 201711
  14. PROAIR HFA [Concomitant]
     Active Substance: ALBUTEROL SULFATE
     Indication: PRODUCT USED FOR UNKNOWN INDICATION
  15. FLOVENT [Suspect]
     Active Substance: FLUTICASONE PROPIONATE
     Indication: EMPHYSEMA
     Dosage: 2 PUFFS
     Route: 055
     Dates: start: 2017

REACTIONS (15)
  - Wheezing [Unknown]
  - Rales [Unknown]
  - Drug ineffective [Unknown]
  - Bronchitis [Unknown]
  - Cough [Unknown]
  - Glaucoma [Unknown]
  - Weight decreased [Unknown]
  - Lung disorder [Unknown]
  - Sputum discoloured [Unknown]
  - Lung neoplasm malignant [Not Recovered/Not Resolved]
  - Dyspnoea [Unknown]
  - Decreased appetite [Unknown]
  - Product use in unapproved indication [Unknown]
  - Productive cough [Unknown]
  - Fall [Unknown]
